FAERS Safety Report 12203286 (Version 1)
Quarter: 2016Q1

REPORT INFORMATION
  Report Type: Spontaneous
  Country: NO (occurrence: NO)
  Receive Date: 20160323
  Receipt Date: 20160323
  Transmission Date: 20160526
  Serious: Yes (Disabling)
  Sender: FDA-Public Use
  Company Number: NO-ACCORD-039055

PATIENT
  Age: 64 Year
  Sex: Female

DRUGS (9)
  1. PERJETA [Interacting]
     Active Substance: PERTUZUMAB
     Indication: BREAST CANCER METASTATIC
     Dosage: EVERY 3. WEEK
     Route: 051
     Dates: start: 20151112, end: 20160210
  2. PACLITAXEL/PACLITAXEL LIPOSOME [Suspect]
     Active Substance: PACLITAXEL
     Indication: BREAST CANCER METASTATIC
     Route: 051
     Dates: start: 2014, end: 20160210
  3. FRAGMIN [Concomitant]
     Active Substance: DALTEPARIN SODIUM
     Route: 051
  4. PANODIL [Concomitant]
     Active Substance: ACETAMINOPHEN
  5. HERCEPTIN [Concomitant]
     Active Substance: TRASTUZUMAB
     Indication: BREAST CANCER METASTATIC
     Route: 058
     Dates: start: 2014
  6. MAGNESIUM CITRATE. [Concomitant]
     Active Substance: MAGNESIUM CITRATE
     Route: 048
  7. CALCIGRAN FORTE [Concomitant]
     Dosage: 500/400
  8. AFIPRAN [Concomitant]
     Active Substance: METOCLOPRAMIDE HYDROCHLORIDE
  9. DEXAMETHASONE. [Concomitant]
     Active Substance: DEXAMETHASONE

REACTIONS (3)
  - Dysaesthesia [Recovering/Resolving]
  - Hypersensitivity [None]
  - Drug interaction [Unknown]

NARRATIVE: CASE EVENT DATE: 201511
